FAERS Safety Report 8041615-1 (Version None)
Quarter: 2012Q1

REPORT INFORMATION
  Report Type: 
  Country: None (occurrence: None)
  Receive Date: 20120112
  Receipt Date: 20120110
  Transmission Date: 20120608
  Serious: Yes (Other)
  Sender: FDA-Public Use
  Company Number: US-JNJFOC-20120103316

PATIENT
  Sex: Female

DRUGS (5)
  1. ITRACONAZOLE [Suspect]
     Indication: PHAEHYPHOMYCOSIS
     Route: 048
     Dates: start: 20111101, end: 20111201
  2. SOTALOL HCL [Concomitant]
     Indication: ATRIAL FIBRILLATION
     Route: 048
  3. RIFAMPIN [Concomitant]
     Indication: LUNG INFECTION
     Route: 065
  4. ETHAMBUTOL HYDROCHLORIDE [Concomitant]
     Indication: LOWER RESPIRATORY TRACT INFECTION BACTERIAL
     Route: 065
  5. SOTALOL HCL [Concomitant]
     Route: 048

REACTIONS (1)
  - HEART RATE INCREASED [None]
